FAERS Safety Report 24424405 (Version 2)
Quarter: 2024Q4

REPORT INFORMATION
  Report Type: Report from Study
  Country: BR (occurrence: BR)
  Receive Date: 20241010
  Receipt Date: 20241017
  Transmission Date: 20250115
  Serious: Yes (Other)
  Sender: JOHNSON AND JOHNSON
  Company Number: BR-JNJFOC-20241003459

PATIENT
  Age: 15 Year
  Sex: Male
  Weight: 64 kg

DRUGS (6)
  1. INFLIXIMAB [Suspect]
     Active Substance: INFLIXIMAB
     Indication: Crohn^s disease
     Route: 041
     Dates: start: 20210531
  2. INFLIXIMAB [Suspect]
     Active Substance: INFLIXIMAB
     Route: 041
  3. INFLIXIMAB [Suspect]
     Active Substance: INFLIXIMAB
     Indication: Crohn^s disease
     Route: 041
     Dates: start: 20210531
  4. INFLIXIMAB [Suspect]
     Active Substance: INFLIXIMAB
     Route: 041
  5. INFLIXIMAB [Suspect]
     Active Substance: INFLIXIMAB
     Dosage: 3 BOTTLES
     Route: 041
  6. REMICADE [Suspect]
     Active Substance: INFLIXIMAB
     Indication: Crohn^s disease
     Dosage: PATIENT USES 3 (100ML) AMPOULES OF THE DRUG INFLIXIMAB EVERY 2 MONTHS?LAST INFUSION WAS ON 27-JUL-20
     Route: 041
     Dates: start: 20210423

REACTIONS (8)
  - Crohn^s disease [Unknown]
  - Weight decreased [Unknown]
  - Arthralgia [Unknown]
  - Off label use [Unknown]
  - Mood altered [Unknown]
  - Product preparation issue [Unknown]
  - Therapeutic response decreased [Unknown]
  - Product prescribing error [Unknown]
